FAERS Safety Report 21085614 (Version 10)
Quarter: 2023Q1

REPORT INFORMATION
  Report Type: Spontaneous
  Country: CA (occurrence: CA)
  Receive Date: 20220715
  Receipt Date: 20230112
  Transmission Date: 20230417
  Serious: Yes (Hospitalization, Other)
  Sender: FDA-Public Use
  Company Number: CA-CELLTRION INC.-2021CA017937

PATIENT

DRUGS (14)
  1. INFLECTRA [Suspect]
     Active Substance: INFLIXIMAB-DYYB
     Indication: Colitis ulcerative
     Dosage: 10 MG/KG, WEEKS 0,1 AND 5 THEN EVERY 6 WEEKS
     Route: 042
     Dates: start: 20211110
  2. INFLECTRA [Suspect]
     Active Substance: INFLIXIMAB-DYYB
     Dosage: 900 MG, WEEKS 0,1 AND 5 THEN EVERY 6 WEEKS
     Route: 042
     Dates: start: 20211110
  3. INFLECTRA [Suspect]
     Active Substance: INFLIXIMAB-DYYB
     Dosage: 10 MG/KG, WEEKS 0,1 AND 5 THEN EVERY 6 WEEKS
     Route: 042
     Dates: start: 20211217
  4. INFLECTRA [Suspect]
     Active Substance: INFLIXIMAB-DYYB
     Dosage: 10 MG/KG, WEEKS 0,1 AND 5 THEN EVERY 6 WEEKS
     Route: 042
     Dates: start: 20220127
  5. INFLECTRA [Suspect]
     Active Substance: INFLIXIMAB-DYYB
     Dosage: 900 MG, WEEKS 0,1 AND 5 WEEKS. THEN EVERY 6 WEEKS
     Route: 042
     Dates: start: 20220314
  6. INFLECTRA [Suspect]
     Active Substance: INFLIXIMAB-DYYB
     Dosage: 900 MG, WEEKS 0,1 AND 5 WEEKS. THEN EVERY 6 WEEKS
     Route: 042
     Dates: start: 20220425
  7. INFLECTRA [Suspect]
     Active Substance: INFLIXIMAB-DYYB
     Dosage: 900 MG, WEEKS 0,1 AND 5 WEEKS. THEN EVERY 6 WEEKS
     Route: 042
     Dates: start: 20220606
  8. INFLECTRA [Suspect]
     Active Substance: INFLIXIMAB-DYYB
     Dosage: 900 MG, WEEKS 0,1 AND 5 WEEKS. THEN EVERY 6 WEEKS
     Route: 042
     Dates: start: 20220718
  9. INFLECTRA [Suspect]
     Active Substance: INFLIXIMAB-DYYB
     Dosage: 900 MG, WEEKS 0,1 AND 5 WEEKS. THEN EVERY 6 WEEKS
     Route: 042
     Dates: start: 20220829
  10. INFLECTRA [Suspect]
     Active Substance: INFLIXIMAB-DYYB
     Dosage: 900 MG, WEEKS 0,1 AND 5 WEEKS. THEN EVERY 6 WEEKS
     Route: 042
     Dates: start: 20221011
  11. INFLECTRA [Suspect]
     Active Substance: INFLIXIMAB-DYYB
     Dosage: 900 MG, WEEKS 0,1 AND 5 WEEKS. THEN EVERY 6 WEEKS
     Route: 042
     Dates: start: 20221122
  12. INFLECTRA [Suspect]
     Active Substance: INFLIXIMAB-DYYB
     Dosage: 900 MG, WEEKS 0,1 AND 5 WEEKS. THEN EVERY 6 WEEKS
     Route: 042
     Dates: start: 20230103
  13. PREDNISONE [Concomitant]
     Active Substance: PREDNISONE
     Dosage: UNK
  14. VALGANCICLOVIR [Concomitant]
     Active Substance: VALGANCICLOVIR
     Dosage: UNK

REACTIONS (14)
  - Large intestine perforation [Not Recovered/Not Resolved]
  - Gastrointestinal disorder [Unknown]
  - Perforation [Not Recovered/Not Resolved]
  - Mammoplasty [Recovered/Resolved]
  - Off label use [Unknown]
  - Off label use [Unknown]
  - Off label use [Unknown]
  - Intentional product use issue [Unknown]
  - Pseudopolyp [Not Recovered/Not Resolved]
  - Vein collapse [Unknown]
  - Poor venous access [Unknown]
  - Weight decreased [Unknown]
  - Attention deficit hyperactivity disorder [Unknown]
  - Condition aggravated [Recovered/Resolved]

NARRATIVE: CASE EVENT DATE: 20211110
